FAERS Safety Report 6248487-6 (Version None)
Quarter: 2009Q2

REPORT INFORMATION
  Report Type: 
  Country: None (occurrence: None)
  Receive Date: 20090629
  Receipt Date: 20090619
  Transmission Date: 20091009
  Serious: Yes (Death, Life-Threatening, Other)
  Sender: FDA-Public Use
  Company Number: JP-BRISTOL-MYERS SQUIBB COMPANY-14588156

PATIENT
  Age: 64 Year
  Sex: Female

DRUGS (8)
  1. SPRYCEL [Suspect]
     Indication: ACUTE LYMPHOCYTIC LEUKAEMIA RECURRENT
     Dosage: DRUG DISCONTINUED
     Route: 048
     Dates: start: 20090403, end: 20090411
  2. FULCALIQ 2 [Suspect]
     Indication: ACUTE LYMPHOCYTIC LEUKAEMIA RECURRENT
     Dosage: 1 DOSAGE FORM =  1BAG
     Route: 042
     Dates: end: 20090411
  3. IMATINIB MESILATE [Concomitant]
     Indication: ACUTE LYMPHOCYTIC LEUKAEMIA
     Dosage: FORM-TAB.
     Route: 048
     Dates: start: 20080226, end: 20090402
  4. FILGRASTIM [Concomitant]
     Dosage: FORM-INJ
     Route: 058
     Dates: start: 20090409, end: 20090411
  5. CARBAZOCHROME SODIUM SULFONATE [Concomitant]
     Dosage: CARBAZOCHROME SODIUM SULFONATE HYDRATE.FORM-INJ
     Route: 042
     Dates: end: 20090410
  6. TRANEXAMIC ACID [Concomitant]
     Dates: end: 20090411
  7. CHLORPHENIRAMINE MALEATE [Concomitant]
     Indication: ALLERGY PROPHYLAXIS
     Dosage: FORM-INJ. 1 DF = 2A
     Route: 042
     Dates: end: 20090409
  8. FUROSEMIDE INTENSOL [Concomitant]
     Dosage: FORM-INJ
     Route: 042
     Dates: end: 20090407

REACTIONS (11)
  - ANAEMIA [None]
  - DIARRHOEA [None]
  - FEBRILE NEUTROPENIA [None]
  - GASTROINTESTINAL HAEMORRHAGE [None]
  - HYPERGLYCAEMIA [None]
  - MALIGNANT NEOPLASM PROGRESSION [None]
  - METABOLIC ACIDOSIS [None]
  - NEUTROPHIL COUNT DECREASED [None]
  - PLATELET COUNT DECREASED [None]
  - VOMITING [None]
  - WHITE BLOOD CELL COUNT DECREASED [None]
